FAERS Safety Report 11292438 (Version 2)
Quarter: 2015Q4

REPORT INFORMATION
  Report Type: Spontaneous
  Country: US (occurrence: US)
  Receive Date: 20150722
  Receipt Date: 20151007
  Transmission Date: 20160304
  Serious: No
  Sender: FDA-Public Use
  Company Number: US-ASTRAZENECA-2011SE50534

PATIENT
  Sex: Female
  Weight: 86.2 kg

DRUGS (12)
  1. SEROQUEL XR [Suspect]
     Active Substance: QUETIAPINE FUMARATE
     Indication: CRYING
     Route: 048
  2. SEROQUEL XR [Suspect]
     Active Substance: QUETIAPINE FUMARATE
     Indication: BIPOLAR DISORDER
     Route: 048
  3. ZOLOFT [Concomitant]
     Active Substance: SERTRALINE HYDROCHLORIDE
     Indication: DEPRESSION
     Dates: start: 2005
  4. ZETIA [Concomitant]
     Active Substance: EZETIMIBE
  5. SEROQUEL XR [Suspect]
     Active Substance: QUETIAPINE FUMARATE
     Indication: BIPOLAR DISORDER
     Route: 048
     Dates: start: 2005, end: 2015
  6. SEROQUEL XR [Suspect]
     Active Substance: QUETIAPINE FUMARATE
     Indication: SLEEP DISORDER THERAPY
     Route: 048
     Dates: start: 2005, end: 2015
  7. SEROQUEL XR [Suspect]
     Active Substance: QUETIAPINE FUMARATE
     Indication: SLEEP DISORDER THERAPY
     Route: 048
  8. CLONAZEPAM. [Concomitant]
     Active Substance: CLONAZEPAM
     Indication: ANXIETY
     Dates: start: 2005
  9. SEROQUEL XR [Suspect]
     Active Substance: QUETIAPINE FUMARATE
     Indication: BIPOLAR DISORDER
     Dosage: CUTTING HER 400 MG SEROQUEL XR TABLETS IN HALF AND TAKING 200 MG AT NIGHT.
     Route: 048
  10. SEROQUEL XR [Suspect]
     Active Substance: QUETIAPINE FUMARATE
     Indication: CRYING
     Route: 048
     Dates: start: 2005, end: 2015
  11. SEROQUEL XR [Suspect]
     Active Substance: QUETIAPINE FUMARATE
     Indication: CRYING
     Dosage: CUTTING HER 400 MG SEROQUEL XR TABLETS IN HALF AND TAKING 200 MG AT NIGHT.
     Route: 048
  12. SEROQUEL XR [Suspect]
     Active Substance: QUETIAPINE FUMARATE
     Indication: SLEEP DISORDER THERAPY
     Dosage: CUTTING HER 400 MG SEROQUEL XR TABLETS IN HALF AND TAKING 200 MG AT NIGHT.
     Route: 048

REACTIONS (13)
  - Fatigue [Unknown]
  - Blood cholesterol increased [Unknown]
  - Crying [Unknown]
  - Feeling abnormal [Unknown]
  - Off label use [Not Recovered/Not Resolved]
  - Glucose tolerance impaired [Unknown]
  - Weight increased [Not Recovered/Not Resolved]
  - Activities of daily living impaired [Unknown]
  - Product use issue [Not Recovered/Not Resolved]
  - Intentional product misuse [Not Recovered/Not Resolved]
  - Depression [Unknown]
  - Abnormal behaviour [Unknown]
  - Therapeutic response unexpected [Unknown]
